FAERS Safety Report 11434854 (Version 1)
Quarter: 2015Q3

REPORT INFORMATION
  Report Type: Spontaneous
  Country: US (occurrence: US)
  Receive Date: 20150831
  Receipt Date: 20150831
  Transmission Date: 20151125
  Serious: No
  Sender: FDA-Public Use
  Company Number: US-ENDO PHARMACEUTICALS INC.-2015-001976

PATIENT
  Age: 33 Year
  Sex: Male
  Weight: 80.81 kg

DRUGS (2)
  1. NATESTO [Suspect]
     Active Substance: TESTOSTERONE
     Indication: BLOOD TESTOSTERONE DECREASED
     Route: 045
     Dates: start: 20150627, end: 20150629
  2. NATESTO [Suspect]
     Active Substance: TESTOSTERONE
     Route: 045
     Dates: start: 20150707, end: 20150709

REACTIONS (3)
  - Pruritus [Recovering/Resolving]
  - Skin irritation [Recovering/Resolving]
  - Erythema [Recovering/Resolving]

NARRATIVE: CASE EVENT DATE: 20150629
